FAERS Safety Report 10753013 (Version 3)
Quarter: 2015Q1

REPORT INFORMATION
  Report Type: Spontaneous
  Country: AU (occurrence: AU)
  Receive Date: 20150130
  Receipt Date: 20150224
  Transmission Date: 20150721
  Serious: Yes (Death, Other)
  Sender: FDA-Public Use
  Company Number: AU-ABBVIE-14P-008-1279260-00

PATIENT
  Age: 55 Year
  Sex: Male

DRUGS (1)
  1. DUODOPA [Suspect]
     Active Substance: CARBIDOPA\LEVODOPA
     Indication: PARKINSON^S DISEASE
     Route: 050

REACTIONS (18)
  - Device occlusion [Recovered/Resolved]
  - Device occlusion [Unknown]
  - Intentional medical device removal by patient [Recovered/Resolved]
  - Intentional medical device removal by patient [Recovered/Resolved]
  - Obstruction gastric [Recovered/Resolved]
  - Device occlusion [Recovered/Resolved]
  - Intentional medical device removal by patient [Recovered/Resolved]
  - Device occlusion [Recovered/Resolved]
  - Device occlusion [Unknown]
  - Device kink [Recovered/Resolved]
  - Device occlusion [Recovered/Resolved]
  - Intestinal infarction [Fatal]
  - Device kink [Recovered/Resolved]
  - Device kink [Recovered/Resolved]
  - Device kink [Recovered/Resolved]
  - Device occlusion [Recovered/Resolved]
  - Device kink [Recovered/Resolved]
  - Intentional medical device removal by patient [Unknown]

NARRATIVE: CASE EVENT DATE: 20080516
